FAERS Safety Report 6402350-6 (Version None)
Quarter: 2009Q4

REPORT INFORMATION
  Report Type: 
  Country: None (occurrence: None)
  Receive Date: 20091015
  Receipt Date: 20091013
  Transmission Date: 20100525
  Serious: Yes (Death, Life-Threatening)
  Sender: FDA-Public Use
  Company Number: PHHY2009JP38769

PATIENT
  Sex: Female

DRUGS (2)
  1. TASIGNA [Suspect]
     Indication: CHRONIC MYELOID LEUKAEMIA
     Dosage: 800 MG/DAY
     Route: 048
     Dates: start: 20090826, end: 20090830
  2. SPRYCEL [Concomitant]
     Indication: CHRONIC MYELOID LEUKAEMIA TRANSFORMATION
     Dosage: 140 MG, UNK
     Route: 048
     Dates: start: 20090317, end: 20090822

REACTIONS (3)
  - BLOOD POTASSIUM DECREASED [None]
  - MALIGNANT NEOPLASM PROGRESSION [None]
  - VENTRICULAR FIBRILLATION [None]
